FAERS Safety Report 11494421 (Version 3)
Quarter: 2015Q4

REPORT INFORMATION
  Report Type: Spontaneous
  Country: FI (occurrence: FI)
  Receive Date: 20150911
  Receipt Date: 20151002
  Transmission Date: 20160304
  Serious: Yes (Other)
  Sender: FDA-Public Use
  Company Number: PHHY2015FI108245

PATIENT
  Sex: Male

DRUGS (3)
  1. ZOMETA [Suspect]
     Active Substance: ZOLEDRONIC ACID
     Indication: PLASMA CELL MYELOMA
     Dosage: 4 MG, UNK
     Route: 042
     Dates: start: 2014, end: 20150818
  2. VELCADE [Concomitant]
     Active Substance: BORTEZOMIB
     Indication: PLASMA CELL MYELOMA
     Dosage: UNK
     Route: 065
     Dates: start: 2014
  3. DEXAMETHASONE. [Concomitant]
     Active Substance: DEXAMETHASONE
     Indication: PLASMA CELL MYELOMA
     Dosage: UNK
     Route: 065
     Dates: start: 2014

REACTIONS (11)
  - Osteonecrosis of jaw [Not Recovered/Not Resolved]
  - Impaired healing [Unknown]
  - Pain in jaw [Unknown]
  - Pain [Unknown]
  - Gingival swelling [Unknown]
  - Fistula [Unknown]
  - Wound [Unknown]
  - Gingival pain [Not Recovered/Not Resolved]
  - Feeding disorder [Unknown]
  - Sciatica [Unknown]
  - Tooth infection [Not Recovered/Not Resolved]

NARRATIVE: CASE EVENT DATE: 2015
